FAERS Safety Report 20097585 (Version 2)
Quarter: 2021Q4

REPORT INFORMATION
  Report Type: Report from Study
  Country: US (occurrence: US)
  Receive Date: 20211122
  Receipt Date: 20211209
  Transmission Date: 20220304
  Serious: Yes (Other)
  Sender: FDA-Public Use
  Company Number: US-NOVARTISTESTPH-NVSC2021US260589

PATIENT
  Sex: Male

DRUGS (1)
  1. KESIMPTA [Suspect]
     Active Substance: OFATUMUMAB
     Indication: Multiple sclerosis
     Dosage: 1 DF, QMO
     Route: 058
     Dates: start: 202011

REACTIONS (9)
  - Multiple sclerosis relapse [Unknown]
  - Autoimmune disorder [Unknown]
  - Blindness [Unknown]
  - Demyelination [Unknown]
  - Gait disturbance [Unknown]
  - Visual impairment [Unknown]
  - Feeling abnormal [Unknown]
  - Fatigue [Unknown]
  - Memory impairment [Unknown]
